FAERS Safety Report 16597461 (Version 3)
Quarter: 2019Q3

REPORT INFORMATION
  Report Type: Spontaneous
  Country: US (occurrence: US)
  Receive Date: 20190719
  Receipt Date: 20190812
  Transmission Date: 20191004
  Serious: No
  Sender: FDA-Public Use
  Company Number: US-PFIZER INC-2019307013

PATIENT
  Age: 62 Year
  Sex: Female
  Weight: 81.63 kg

DRUGS (3)
  1. PREMPRO [Suspect]
     Active Substance: ESTROGENS, CONJUGATED\MEDROXYPROGESTERONE ACETATE
     Indication: MOOD ALTERED
  2. PREMPHASE [Suspect]
     Active Substance: ESTROGENS, CONJUGATED\MEDROXYPROGESTERONE ACETATE
     Indication: ALOPECIA
     Dosage: UNK
  3. PREMPRO [Suspect]
     Active Substance: ESTROGENS, CONJUGATED\MEDROXYPROGESTERONE ACETATE
     Indication: ALOPECIA
     Dosage: 1.5 MG, 1X/DAY (ONE TAB DAY 1.5 MG)
     Dates: start: 20190627, end: 20190720

REACTIONS (11)
  - Off label use [Unknown]
  - Depression [Recovered/Resolved]
  - Fluid retention [Unknown]
  - Dyspnoea [Unknown]
  - Weight decreased [Unknown]
  - Thyroid hormones decreased [Unknown]
  - Arthritis [Unknown]
  - Drug effective for unapproved indication [Unknown]
  - Rash [Unknown]
  - Eye swelling [Unknown]
  - Pruritus generalised [Unknown]

NARRATIVE: CASE EVENT DATE: 20190627
